FAERS Safety Report 18642525 (Version 3)
Quarter: 2020Q4

REPORT INFORMATION
  Report Type: Spontaneous
  Country: JP (occurrence: JP)
  Receive Date: 20201221
  Receipt Date: 20201229
  Transmission Date: 20210114
  Serious: Yes (Death, Hospitalization, Other)
  Sender: FDA-Public Use
  Company Number: JP-009507513-2012JPN002212J

PATIENT
  Age: 63 Year
  Sex: Male

DRUGS (4)
  1. SERENACE [Suspect]
     Active Substance: HALOPERIDOL
     Dosage: UNK, QD
     Route: 048
  2. LINZESS [Suspect]
     Active Substance: LINACLOTIDE
     Dosage: UNK, BID
     Route: 048
     Dates: end: 202011
  3. KEYTRUDA [Suspect]
     Active Substance: PEMBROLIZUMAB
     Indication: LARGE CELL LUNG CANCER STAGE IV
     Dosage: 200 MILLIGRAM, Q3W
     Route: 041
     Dates: start: 20201028, end: 20201028
  4. BENZALIN [NITRAZEPAM] [Suspect]
     Active Substance: NITRAZEPAM
     Dosage: UNK, QD
     Route: 048
     Dates: end: 202011

REACTIONS (3)
  - Urinary retention [Recovered/Resolved]
  - Intestinal perforation [Fatal]
  - Malignant neoplasm progression [Unknown]

NARRATIVE: CASE EVENT DATE: 20201109
